FAERS Safety Report 5211674-X (Version None)
Quarter: 2007Q1

REPORT INFORMATION
  Report Type: 
  Country: None (occurrence: None)
  Receive Date: 20070117
  Receipt Date: 20070117
  Transmission Date: 20070707
  Serious: No
  Sender: FDA-Public Use
  Company Number: None

PATIENT
  Age: 59 Year
  Sex: Female
  Weight: 77.1115 kg

DRUGS (1)
  1. FORTEO [Suspect]
     Indication: OSTEOPOROSIS
     Dosage: 20MCG EVERY DAY SQ
     Route: 058
     Dates: start: 20051210, end: 20051226

REACTIONS (3)
  - FOOT FRACTURE [None]
  - MUSCLE SPASMS [None]
  - PRURITUS [None]
